FAERS Safety Report 18771875 (Version 1)
Quarter: 2021Q1

REPORT INFORMATION
  Report Type: Spontaneous
  Country: DE (occurrence: DE)
  Receive Date: 20210121
  Receipt Date: 20210121
  Transmission Date: 20210419
  Serious: No
  Sender: FDA-Public Use
  Company Number: DE-SHIRE-DE201913212

PATIENT

DRUGS (2)
  1. MEDIKINET RETARD [Suspect]
     Active Substance: METHYLPHENIDATE
     Indication: ATTENTION DEFICIT HYPERACTIVITY DISORDER
     Dosage: 40 MILLIGRAM, 1X/DAY:QD
     Route: 065
  2. INTUNIV [Suspect]
     Active Substance: GUANFACINE HYDROCHLORIDE
     Indication: ATTENTION DEFICIT HYPERACTIVITY DISORDER
     Dosage: 3 MILLIGRAM, 1X/DAY:QD
     Route: 065

REACTIONS (2)
  - Drug ineffective [Unknown]
  - Raynaud^s phenomenon [Unknown]
